FAERS Safety Report 5378161-X (Version None)
Quarter: 2007Q3

REPORT INFORMATION
  Report Type: 
  Country: None (occurrence: None)
  Receive Date: 20070705
  Receipt Date: 20070627
  Transmission Date: 20080115
  Serious: Yes (Other)
  Sender: FDA-Public Use
  Company Number: PHBS2007IN11002

PATIENT
  Sex: Female

DRUGS (2)
  1. PAMIDRONATE DISODIUM [Suspect]
     Indication: OSTEOLYSIS
     Dosage: 15 MG, UNK
     Dates: start: 20020201, end: 20050301
  2. ROCALTROL [Concomitant]
     Dosage: UNK, PRN

REACTIONS (3)
  - BONE DENSITY DECREASED [None]
  - DRUG INEFFECTIVE FOR UNAPPROVED INDICATION [None]
  - PYREXIA [None]
